FAERS Safety Report 5582694-0 (Version None)
Quarter: 2008Q1

REPORT INFORMATION
  Report Type: 
  Country: None (occurrence: None)
  Receive Date: 20080107
  Receipt Date: 20071226
  Transmission Date: 20080703
  Serious: Yes (Life-Threatening, Hospitalization)
  Sender: FDA-Public Use
  Company Number: FR-BRISTOL-MYERS SQUIBB COMPANY-14029201

PATIENT
  Age: 64 Year
  Sex: Male

DRUGS (1)
  1. HOLOXAN [Suspect]
     Route: 042
     Dates: start: 20070522, end: 20070522

REACTIONS (3)
  - COMA [None]
  - ENCEPHALOPATHY [None]
  - RENAL FAILURE [None]
